FAERS Safety Report 15712748 (Version 1)
Quarter: 2018Q4

REPORT INFORMATION
  Report Type: Report from Study
  Country: US (occurrence: US)
  Receive Date: 20181212
  Receipt Date: 20181212
  Transmission Date: 20190205
  Serious: Yes (Other)
  Sender: FDA-Public Use
  Company Number: US-ROCHE-2225999

PATIENT
  Sex: Female
  Weight: 69.92 kg

DRUGS (1)
  1. PEGASYS [Suspect]
     Active Substance: PEGINTERFERON ALFA-2A
     Indication: POLYCYTHAEMIA VERA
     Route: 065

REACTIONS (27)
  - Pneumonia [Unknown]
  - Angioedema [Unknown]
  - Fatigue [Unknown]
  - Palpitations [Unknown]
  - Alopecia [Unknown]
  - Flushing [Unknown]
  - Oropharyngeal pain [Unknown]
  - Upper-airway cough syndrome [Unknown]
  - Intentional product use issue [Unknown]
  - Off label use [Unknown]
  - Throat irritation [Unknown]
  - Weight increased [Unknown]
  - Temperature intolerance [Unknown]
  - Urticaria [Unknown]
  - Dyspnoea [Unknown]
  - Cough [Unknown]
  - Feeling abnormal [Unknown]
  - Visual impairment [Unknown]
  - Memory impairment [Unknown]
  - Dysphonia [Unknown]
  - Pruritus [Unknown]
  - Lip swelling [Unknown]
  - Dyspepsia [Unknown]
  - Night sweats [Unknown]
  - Dysphagia [Unknown]
  - Gastrooesophageal reflux disease [Unknown]
  - Disturbance in attention [Unknown]
